FAERS Safety Report 6696129-8 (Version None)
Quarter: 2010Q2

REPORT INFORMATION
  Report Type: 
  Country: None (occurrence: None)
  Receive Date: 20100426
  Receipt Date: 20100415
  Transmission Date: 20101027
  Serious: Yes (Other)
  Sender: FDA-Public Use
  Company Number: US-BAYER-201018098NA

PATIENT
  Age: 66 Year
  Sex: Male

DRUGS (4)
  1. SORAFENIB [Suspect]
     Indication: METASTATIC RENAL CELL CARCINOMA
     Dosage: TOTAL DAILY DOSE: 400 MG  UNIT DOSE: 200 MG
     Route: 048
  2. SORAFENIB [Suspect]
     Dosage: TOTAL DAILY DOSE: 200 MG  UNIT DOSE: 200 MG
     Route: 048
  3. SORAFENIB [Suspect]
     Dosage: DISCONTINUED ON CYCLE 3: DAY 9
     Route: 048
     Dates: end: 20100309
  4. BEVACIZUMAB [Suspect]
     Indication: METASTATIC RENAL CELL CARCINOMA
     Dates: end: 20100309

REACTIONS (2)
  - BLOOD PHOSPHORUS ABNORMAL [None]
  - VASCULITIS [None]
